FAERS Safety Report 8525188 (Version 9)
Quarter: 2015Q4

REPORT INFORMATION
  Report Type: Spontaneous
  Country: JP (occurrence: JP)
  Receive Date: 20120423
  Receipt Date: 20151231
  Transmission Date: 20160305
  Serious: Yes (Death, Other)
  Sender: FDA-Public Use
  Company Number: PHHY2012JP032537

PATIENT
  Age: 37 Year
  Sex: Male

DRUGS (18)
  1. PREDNISOLONE. [Suspect]
     Active Substance: PREDNISOLONE
     Indication: RENAL AND PANCREAS TRANSPLANT
     Dosage: UNK
     Route: 065
  2. TACROLIMUS. [Suspect]
     Active Substance: TACROLIMUS
     Indication: RENAL AND PANCREAS TRANSPLANT
     Dosage: UNK
     Route: 065
  3. INSULIN [Concomitant]
     Active Substance: INSULIN NOS
     Indication: PRODUCT USED FOR UNKNOWN INDICATION
     Dosage: UNK
     Route: 065
  4. NEORAL [Suspect]
     Active Substance: CYCLOSPORINE
     Indication: PROPHYLAXIS AGAINST TRANSPLANT REJECTION
  5. SIMULECT [Suspect]
     Active Substance: BASILIXIMAB
     Indication: PROPHYLAXIS AGAINST TRANSPLANT REJECTION
     Route: 042
  6. MYCOPHENOLIC ACID. [Suspect]
     Active Substance: MYCOPHENOLIC ACID
     Indication: RENAL AND PANCREAS TRANSPLANT
     Dosage: UNK
     Route: 065
  7. MYCOPHENOLIC ACID. [Suspect]
     Active Substance: MYCOPHENOLIC ACID
     Indication: PROPHYLAXIS AGAINST TRANSPLANT REJECTION
  8. MYCOPHENOLIC ACID. [Suspect]
     Active Substance: MYCOPHENOLIC ACID
     Indication: IMMUNOSUPPRESSANT DRUG THERAPY
  9. TACROLIMUS. [Suspect]
     Active Substance: TACROLIMUS
     Indication: PROPHYLAXIS AGAINST TRANSPLANT REJECTION
  10. MYCOPHENOLATE MOFETIL. [Concomitant]
     Active Substance: MYCOPHENOLATE MOFETIL
     Indication: PROPHYLAXIS AGAINST TRANSPLANT REJECTION
     Dosage: UNK
     Route: 065
  11. NEORAL [Suspect]
     Active Substance: CYCLOSPORINE
     Indication: RENAL AND PANCREAS TRANSPLANT
     Dosage: UNK
     Route: 065
  12. TACROLIMUS. [Suspect]
     Active Substance: TACROLIMUS
     Indication: IMMUNOSUPPRESSANT DRUG THERAPY
  13. NEORAL [Suspect]
     Active Substance: CYCLOSPORINE
     Indication: RENAL AND PANCREAS TRANSPLANT REJECTION
  14. NEORAL [Suspect]
     Active Substance: CYCLOSPORINE
     Indication: IMMUNOSUPPRESSANT DRUG THERAPY
  15. SIMULECT [Suspect]
     Active Substance: BASILIXIMAB
     Indication: RENAL AND PANCREAS TRANSPLANT
     Dosage: 20 MG, UNK
     Route: 042
  16. PREDNISOLONE. [Suspect]
     Active Substance: PREDNISOLONE
     Indication: IMMUNOSUPPRESSANT DRUG THERAPY
  17. CORTICOSTEROID NOS [Concomitant]
     Active Substance: CORTICOSTEROID NOS
     Indication: PROPHYLAXIS AGAINST TRANSPLANT REJECTION
     Dosage: UNK
     Route: 065
  18. INSULIN [Concomitant]
     Active Substance: INSULIN NOS
     Dosage: UNK
     Route: 065

REACTIONS (20)
  - Thrombotic microangiopathy [Recovered/Resolved]
  - Acute graft versus host disease [Recovering/Resolving]
  - Diarrhoea [Recovered/Resolved]
  - Bone marrow failure [Recovering/Resolving]
  - Pneumonia pseudomonal [Fatal]
  - Pain [Recovering/Resolving]
  - Rash [Recovering/Resolving]
  - Exfoliative rash [Recovering/Resolving]
  - Pancytopenia [Recovering/Resolving]
  - Hepatic function abnormal [Recovering/Resolving]
  - Bacteraemia [Fatal]
  - Rash generalised [Fatal]
  - Hypotension [Recovering/Resolving]
  - Aspartate aminotransferase increased [Recovering/Resolving]
  - General physical health deterioration [Fatal]
  - Post transplant distal limb syndrome [Unknown]
  - Respiratory failure [Recovering/Resolving]
  - Alanine aminotransferase increased [Recovering/Resolving]
  - Sepsis [Recovering/Resolving]
  - Pyrexia [Recovering/Resolving]
